FAERS Safety Report 16003570 (Version 1)
Quarter: 2019Q1

REPORT INFORMATION
  Report Type: Report from Study
  Country: IT (occurrence: IT)
  Receive Date: 20190226
  Receipt Date: 20190226
  Transmission Date: 20190418
  Serious: Yes (Other)
  Sender: FDA-Public Use
  Company Number: IT-TEVA-2019-IT-1015228

PATIENT
  Age: 70 Year
  Sex: Female

DRUGS (6)
  1. MOXIFLOXACIN HYDROCHLORIDE. [Suspect]
     Active Substance: MOXIFLOXACIN HYDROCHLORIDE
     Indication: PNEUMONIA
     Route: 048
     Dates: start: 20190124, end: 20190124
  2. CIPROXIN 500?MG COMPRESSE RIVESTITE CON FILM [Concomitant]
     Active Substance: CIPROFLOXACIN
  3. ALPRAZOLAM. [Concomitant]
     Active Substance: ALPRAZOLAM
  4. MEDROL 4 MG COMPRESSE [Concomitant]
     Dates: start: 20190123, end: 20190125
  5. CARDICOR 1,25 MG COMPRESSE RIVESTITE CON FILM [Concomitant]
     Active Substance: BISOPROLOL FUMARATE
  6. CARDIOASPIRIN 100 MG COMPRESSE GASTRORESISTENTI [Concomitant]
     Active Substance: ASPIRIN

REACTIONS (5)
  - Drug hypersensitivity [Recovered/Resolved]
  - Asthenia [Recovered/Resolved]
  - Erythema [Recovered/Resolved]
  - Hot flush [Recovered/Resolved]
  - Tremor [Recovered/Resolved]

NARRATIVE: CASE EVENT DATE: 20190124
